FAERS Safety Report 6250250-7 (Version None)
Quarter: 2009Q2

REPORT INFORMATION
  Report Type: 
  Country: None (occurrence: None)
  Receive Date: 20090626
  Receipt Date: 20090626
  Transmission Date: 20091009
  Serious: Yes (Hospitalization)
  Sender: FDA-Public Use
  Company Number: None

PATIENT
  Sex: Male
  Weight: 22.8 kg

DRUGS (6)
  1. METHOTREXATE SODIUM [Suspect]
     Dosage: 36 MG
     Dates: end: 20090618
  2. ONCASPAR [Suspect]
     Dosage: 2400 IU
     Dates: end: 20090618
  3. VINCRISTINE SULFATE [Suspect]
     Dosage: 1.4 MG
     Dates: end: 20090618
  4. CYCLOPHOSPHAMIDE [Suspect]
     Dates: end: 20090605
  5. CYTARABINE [Suspect]
     Dosage: 584
     Dates: end: 20090614
  6. MERCAPTOPURINE [Suspect]
     Dosage: 800 MG
     Dates: end: 20090618

REACTIONS (11)
  - ABNORMAL BEHAVIOUR [None]
  - AGITATION [None]
  - BLOOD FOLATE DECREASED [None]
  - CHOREOATHETOSIS [None]
  - CRYING [None]
  - EMOTIONAL DISORDER [None]
  - FRUSTRATION [None]
  - MENTAL STATUS CHANGES [None]
  - MOVEMENT DISORDER [None]
  - NEUROLOGICAL SYMPTOM [None]
  - SCREAMING [None]
